FAERS Safety Report 10454347 (Version 1)
Quarter: 2014Q3

REPORT INFORMATION
  Report Type: Spontaneous
  Country: US (occurrence: US)
  Receive Date: 20140915
  Receipt Date: 20140915
  Transmission Date: 20150326
  Serious: No
  Sender: FDA-Public Use
  Company Number: US-PFIZER INC-2014254728

PATIENT
  Age: 56 Year
  Sex: Female
  Weight: 109 kg

DRUGS (1)
  1. LYRICA [Suspect]
     Active Substance: PREGABALIN
     Dosage: UNK

REACTIONS (4)
  - Malaise [Unknown]
  - Speech disorder [Unknown]
  - Somnolence [Unknown]
  - Back disorder [Unknown]
